FAERS Safety Report 15694012 (Version 2)
Quarter: 2018Q4

REPORT INFORMATION
  Report Type: Spontaneous
  Country: RU (occurrence: RU)
  Receive Date: 20181206
  Receipt Date: 20181213
  Transmission Date: 20190205
  Serious: Yes (Life-Threatening, Other)
  Sender: FDA-Public Use
  Company Number: RU-VIIV HEALTHCARE LIMITED-RU2018GSK220304

PATIENT
  Age: 39 Year
  Sex: Female
  Weight: 61 kg

DRUGS (3)
  1. AMIVIREN [Concomitant]
     Active Substance: LAMIVUDINE
     Indication: HIV INFECTION
     Dosage: UNK, 300 MG
     Route: 048
     Dates: start: 20180428
  2. TIVICAY [Suspect]
     Active Substance: DOLUTEGRAVIR SODIUM
     Indication: HIV INFECTION
     Dosage: UNK
     Route: 048
     Dates: start: 20180428
  3. INTELENCE [Concomitant]
     Active Substance: ETRAVIRINE
     Indication: HIV INFECTION
     Dosage: UNK
     Route: 048
     Dates: start: 20180428

REACTIONS (9)
  - Nausea [Unknown]
  - Hypoaesthesia [Unknown]
  - Anxiety [Unknown]
  - Rash papular [Unknown]
  - Tachycardia [Unknown]
  - Panic attack [Not Recovered/Not Resolved]
  - Fear [Unknown]
  - Toxic skin eruption [Unknown]
  - Syncope [Unknown]

NARRATIVE: CASE EVENT DATE: 20180516
